FAERS Safety Report 8174692-8 (Version None)
Quarter: 2012Q1

REPORT INFORMATION
  Report Type: 
  Country: None (occurrence: None)
  Receive Date: 20120229
  Receipt Date: 20120224
  Transmission Date: 20120608
  Serious: Yes (Hospitalization)
  Sender: FDA-Public Use
  Company Number: US-GLAXOSMITHKLINE-A0931639A

PATIENT
  Age: 52 Year
  Sex: Female
  Weight: 110 kg

DRUGS (12)
  1. VALIUM [Concomitant]
     Dosage: 5MG AT NIGHT
  2. FUROSEMIDE [Concomitant]
     Dosage: 160MG PER DAY
  3. CIPRO [Concomitant]
  4. IMODIUM A-D [Concomitant]
     Dosage: 2TAB AS REQUIRED
  5. FLOLAN [Suspect]
     Indication: PULMONARY ARTERIAL HYPERTENSION
     Dosage: 25NGKM UNKNOWN
     Route: 065
     Dates: start: 20020723
  6. IMODIUM [Concomitant]
     Dosage: 2TABS AS REQUIRED
  7. DIAZEPAM [Concomitant]
     Dosage: 5MG AT NIGHT
  8. OXYGEN [Concomitant]
  9. GLUCOPHAGE [Concomitant]
     Dosage: 1000MG TWICE PER DAY
  10. OXYCODONE HCL [Concomitant]
     Dosage: 15MG FOUR TIMES PER DAY
  11. LASIX [Concomitant]
     Dosage: 80MG PER DAY
  12. SPIRONOLACTONE [Concomitant]
     Dosage: 100MG PER DAY

REACTIONS (2)
  - UPPER RESPIRATORY TRACT INFECTION [None]
  - DYSPNOEA [None]
